FAERS Safety Report 8839599 (Version 1)
Quarter: 2012Q4

REPORT INFORMATION
  Report Type: 
  Country: VE (occurrence: VE)
  Receive Date: 20121015
  Receipt Date: 20121015
  Transmission Date: 20130627
  Serious: Yes (Other)
  Sender: FDA-Public Use
  Company Number: PHHY2012VE090519

PATIENT
  Sex: Female

DRUGS (4)
  1. ACLASTA [Suspect]
     Indication: OSTEOPOROSIS
     Dosage: 5 mg, yearly
     Route: 042
     Dates: start: 201102
  2. CALCIUM [Concomitant]
  3. VITAMIN E [Concomitant]
  4. NATURAL REMEDIES [Concomitant]
     Indication: MENOPAUSE
     Dates: start: 201209

REACTIONS (7)
  - Silent myocardial infarction [Recovered/Resolved]
  - Hypercholesterolaemia [Recovered/Resolved]
  - Hypertension [Recovered/Resolved]
  - Malaise [Recovered/Resolved]
  - Nausea [Recovered/Resolved]
  - Dizziness [Recovered/Resolved]
  - Pain [Recovered/Resolved]
